FAERS Safety Report 9031481 (Version 4)
Quarter: 2013Q1

REPORT INFORMATION
  Report Type: Report from Study
  Country: JP (occurrence: JP)
  Receive Date: 20130124
  Receipt Date: 20130312
  Transmission Date: 20140127
  Serious: Yes (Hospitalization, Other)
  Sender: FDA-Public Use
  Company Number: JP-JNJFOC-20130110536

PATIENT
  Age: 76 Year
  Sex: Female
  Weight: 55 kg

DRUGS (13)
  1. TRAMCET [Suspect]
     Indication: PAIN
     Dosage: THRICE DAILY
     Route: 048
     Dates: start: 20121126, end: 20121217
  2. TRAMCET [Suspect]
     Indication: PAIN
     Dosage: TWICE DAILY
     Route: 048
     Dates: start: 20121004, end: 20121125
  3. TRAMCET [Suspect]
     Indication: PAIN
     Dosage: ONCE DAILY
     Route: 048
     Dates: start: 20120926, end: 20121003
  4. CELECOX [Suspect]
     Indication: PAIN
     Dosage: ONCE DAILY
     Route: 048
     Dates: end: 20121216
  5. MOHRUS TAPE [Suspect]
     Indication: PAIN
     Dosage: ONCE DAILY
     Route: 062
  6. FOSAMAC [Concomitant]
     Indication: OSTEOPOROSIS
     Dosage: 1 PER 1 WEEK
     Route: 048
  7. BLOPRESS [Concomitant]
     Indication: HYPERTENSION
     Dosage: ONE PER ONE DAY
     Route: 048
  8. MADOPAR [Concomitant]
     Indication: PARKINSON^S DISEASE
     Dosage: ONE PER ONE DAY
     Route: 048
  9. MUCOSTA [Concomitant]
     Indication: PROPHYLAXIS
     Dosage: ONE PER ONE DAY
     Route: 048
  10. GASTER [Concomitant]
     Indication: PROPHYLAXIS
     Route: 048
     Dates: end: 20121215
  11. LANTUS [Concomitant]
     Indication: DIABETES MELLITUS
     Dosage: ONE PER ONE DAY
     Route: 058
  12. EDIROL [Concomitant]
     Indication: OSTEOPOROSIS
     Dosage: ONE PER ONE DAY
     Route: 048
     Dates: start: 20121201
  13. NEXIUM [Concomitant]
     Indication: GASTRIC ULCER
     Dosage: ONE PER ONE DAY
     Route: 048
     Dates: start: 20121215

REACTIONS (3)
  - Fall [Recovering/Resolving]
  - Spinal compression fracture [Recovering/Resolving]
  - Gastric ulcer [Recovered/Resolved]
